FAERS Safety Report 9672153 (Version 1)
Quarter: 2013Q4

REPORT INFORMATION
  Report Type: Spontaneous
  Country: JP (occurrence: JP)
  Receive Date: 20131106
  Receipt Date: 20131106
  Transmission Date: 20140711
  Serious: Yes (Disabling)
  Sender: FDA-Public Use
  Company Number: PHHY2013JP125382

PATIENT
  Sex: 0

DRUGS (2)
  1. DIOVAN [Suspect]
     Indication: HYPERTENSION
     Dosage: UNK UKN, UNK
     Route: 048
     Dates: start: 20090216
  2. NORVASC [Concomitant]
     Dosage: UNK UKN, UNK
     Route: 048
     Dates: start: 2008

REACTIONS (2)
  - Lacunar infarction [Recovered/Resolved with Sequelae]
  - Hypoaesthesia [Unknown]
